FAERS Safety Report 12354056 (Version 1)
Quarter: 2016Q2

REPORT INFORMATION
  Report Type: Spontaneous
  Country: GB (occurrence: GB)
  Receive Date: 20160511
  Receipt Date: 20160511
  Transmission Date: 20160815
  Serious: Yes (Other)
  Sender: FDA-Public Use
  Company Number: GB-ACCORD-040371

PATIENT
  Sex: Male

DRUGS (1)
  1. CLOPIDOGREL [Suspect]
     Active Substance: CLOPIDOGREL BISULFATE
     Indication: PRODUCT USED FOR UNKNOWN INDICATION

REACTIONS (11)
  - Malaise [Recovering/Resolving]
  - Headache [Not Recovered/Not Resolved]
  - Facial paralysis [Not Recovered/Not Resolved]
  - Abdominal pain upper [Recovering/Resolving]
  - Haemorrhage [Recovering/Resolving]
  - Eye disorder [Recovering/Resolving]
  - Amnesia [Recovering/Resolving]
  - Mouth swelling [Recovering/Resolving]
  - Sensory loss [Recovering/Resolving]
  - Myalgia [Recovering/Resolving]
  - Dizziness [Recovering/Resolving]
